FAERS Safety Report 5465477-1 (Version None)
Quarter: 2007Q3

REPORT INFORMATION
  Report Type: 
  Country: None (occurrence: None)
  Receive Date: 20070920
  Receipt Date: 20070920
  Transmission Date: 20080115
  Serious: Yes (Disabling, Other)
  Sender: FDA-Public Use
  Company Number: None

PATIENT
  Age: 27 Year
  Sex: Female
  Weight: 60 kg

DRUGS (1)
  1. SUCCINYLCHOLINE CHLORIDE [Suspect]
     Indication: DEPRESSION
     Dosage: 80 MG  ONCE  IV BOLUS
     Route: 040
     Dates: start: 20070910, end: 20070919

REACTIONS (5)
  - ANAESTHETIC COMPLICATION [None]
  - CONVULSION [None]
  - DRUG INEFFECTIVE [None]
  - LIMB INJURY [None]
  - PHARMACEUTICAL PRODUCT COMPLAINT [None]
